FAERS Safety Report 8432063-0 (Version None)
Quarter: 2012Q2

REPORT INFORMATION
  Report Type: 
  Country: None (occurrence: None)
  Receive Date: 20120606
  Receipt Date: 20120522
  Transmission Date: 20120825
  Serious: Yes (Hospitalization, Other)
  Sender: FDA-Public Use
  Company Number: DSJ-2012-05181

PATIENT
  Age: 8 Decade
  Sex: Male

DRUGS (7)
  1. INSULIN (INSULIN) (INSULIN) [Concomitant]
  2. BENICAR [Suspect]
     Indication: HYPERTENSION
     Dosage: 20 MG (20 MG, 1 IN 1 D) , PER ORAL
     Route: 048
     Dates: start: 20060101
  3. HYDROCHLOROTHIAZIDE [Suspect]
     Indication: OEDEMA PERIPHERAL
     Dosage: 25 MG, PER ORAL
     Route: 048
     Dates: start: 20120301
  4. INDAPAMIDE [Concomitant]
  5. METFORMIN HCL [Concomitant]
  6. CLONIDINE [Concomitant]
  7. AMLODIPINE [Concomitant]

REACTIONS (16)
  - URINARY INCONTINENCE [None]
  - PROCEDURAL HYPOTENSION [None]
  - ESCHAR [None]
  - COMA [None]
  - HEPATITIS [None]
  - NECROSIS [None]
  - DRUG INEFFECTIVE [None]
  - MULTI-ORGAN FAILURE [None]
  - DIALYSIS [None]
  - OEDEMA PERIPHERAL [None]
  - SEPSIS [None]
  - RENAL FAILURE ACUTE [None]
  - MUSCULOSKELETAL STIFFNESS [None]
  - AMNESIA [None]
  - DEAFNESS UNILATERAL [None]
  - DRUG ADMINISTRATION ERROR [None]
